FAERS Safety Report 5642756-6 (Version None)
Quarter: 2008Q1

REPORT INFORMATION
  Report Type: 
  Country: None (occurrence: None)
  Receive Date: 20080226
  Receipt Date: 20080211
  Transmission Date: 20080703
  Serious: Yes (Hospitalization)
  Sender: FDA-Public Use
  Company Number: E3810-01596-SPO-ES

PATIENT
  Age: 73 Year
  Sex: Female

DRUGS (6)
  1. RABEPRAZOLE SODIUM [Suspect]
     Indication: GASTROOESOPHAGEAL REFLUX DISEASE
     Dosage: 20 MG, 1 IN 1 D, ORAL
     Route: 048
     Dates: start: 20060101, end: 20070401
  2. NAVIXEN PLUS (EPROSARTAN MESILATE) [Suspect]
     Indication: HYPERTENSION
     Dosage: 1 IN 1 D, ORAL
     Route: 048
     Dates: start: 20050501
  3. COLPOTROFIN VAGINAL CREAM (PROMESTRIENE) [Concomitant]
  4. CIDINE (CINITAPRIDE TARTRATE) [Concomitant]
  5. ZOCOR [Concomitant]
  6. GELOCATIL (PARACETAMOL) [Concomitant]

REACTIONS (1)
  - RENAL FAILURE ACUTE [None]
